FAERS Safety Report 21385880 (Version 2)
Quarter: 2023Q1

REPORT INFORMATION
  Report Type: Spontaneous
  Country: CA (occurrence: CA)
  Receive Date: 20220928
  Receipt Date: 20230206
  Transmission Date: 20230418
  Serious: Yes (Hospitalization, Other)
  Sender: FDA-Public Use
  Company Number: CA-NOVARTISPH-NVSC2022CA217875

PATIENT
  Age: 52 Year
  Sex: Female

DRUGS (16)
  1. ESTRADIOL [Suspect]
     Active Substance: ESTRADIOL
     Indication: Product used for unknown indication
     Dosage: UNK
     Route: 065
  2. BUDESONIDE [Suspect]
     Active Substance: BUDESONIDE
     Indication: Product used for unknown indication
     Dosage: 1 DOSAGE FORM, QD
     Route: 065
  3. PROGESTERONE [Suspect]
     Active Substance: PROGESTERONE
     Indication: Menopause
     Dosage: UNK
     Route: 065
  4. LORATADINE [Suspect]
     Active Substance: LORATADINE
     Indication: Product used for unknown indication
     Dosage: 10 MG
     Route: 048
  5. CRINONE [Suspect]
     Active Substance: PROGESTERONE
     Indication: Menopause
     Dosage: UNK
     Route: 065
  6. CRINONE [Suspect]
     Active Substance: PROGESTERONE
     Dosage: UNK
     Route: 065
  7. PRASTERONE [Suspect]
     Active Substance: PRASTERONE
     Indication: Product used for unknown indication
     Dosage: UNK
     Route: 067
  8. PRASTERONE [Suspect]
     Active Substance: PRASTERONE
     Dosage: UNK
     Route: 067
  9. PRASTERONE [Suspect]
     Active Substance: PRASTERONE
     Dosage: UNK
     Route: 067
  10. PRASTERONE [Suspect]
     Active Substance: PRASTERONE
     Dosage: UNK
     Route: 067
  11. PRASTERONE [Suspect]
     Active Substance: PRASTERONE
     Dosage: UNK
     Route: 065
  12. PRASTERONE [Suspect]
     Active Substance: PRASTERONE
     Dosage: UNK
     Route: 067
  13. PRASTERONE [Suspect]
     Active Substance: PRASTERONE
     Dosage: UNK
     Route: 067
  14. PRASTERONE [Suspect]
     Active Substance: PRASTERONE
     Dosage: UNK
     Route: 067
  15. CLARITIN [Concomitant]
     Active Substance: LORATADINE
     Indication: Product used for unknown indication
     Dosage: UNK
     Route: 065
  16. GLICLAZIDE [Concomitant]
     Active Substance: GLICLAZIDE
     Indication: Product used for unknown indication
     Dosage: UNK
     Route: 065

REACTIONS (12)
  - Butterfly rash [Unknown]
  - Cellulitis [Unknown]
  - Feeling hot [Unknown]
  - Head discomfort [Unknown]
  - Headache [Unknown]
  - Periorbital oedema [Unknown]
  - Tinnitus [Unknown]
  - Swelling face [Unknown]
  - Rash [Unknown]
  - Photosensitivity reaction [Unknown]
  - Off label use [Unknown]
  - Product use in unapproved indication [Unknown]
